FAERS Safety Report 10696810 (Version 1)
Quarter: 2015Q1

REPORT INFORMATION
  Report Type: Not Available
  Country: US (occurrence: US)
  Receive Date: 20150108
  Receipt Date: 20150108
  Transmission Date: 20150721
  Serious: No
  Sender: FDA-Public Use
  Company Number: US-LUPIN PHARMACEUTICALS INC.-E2B_00001567

PATIENT
  Age: 4 Year
  Sex: Female
  Weight: 12.71 kg

DRUGS (4)
  1. LIO-MEL [Concomitant]
     Indication: THYROID DISORDER
  2. GINKO BILOBA [Concomitant]
     Indication: PRODUCT USED FOR UNKNOWN INDICATION
     Route: 065
  3. CEFDINIR FOR ORAL SUSPENSION USP 250 MG /5 ML [Suspect]
     Active Substance: CEFDINIR
     Indication: PHARYNGITIS STREPTOCOCCAL
     Dates: start: 20131218
  4. LEVOTHYROXINE [Concomitant]
     Active Substance: LEVOTHYROXINE
     Indication: THYROID DISORDER

REACTIONS (2)
  - Irritability [Not Recovered/Not Resolved]
  - Emotional disorder [Not Recovered/Not Resolved]

NARRATIVE: CASE EVENT DATE: 20131218
